FAERS Safety Report 17771313 (Version 1)
Quarter: 2020Q2

REPORT INFORMATION
  Report Type: Spontaneous
  Country: US (occurrence: US)
  Receive Date: 20200512
  Receipt Date: 20200512
  Transmission Date: 20200714
  Serious: Yes (Hospitalization, Other)
  Sender: FDA-Public Use
  Company Number: US-PFIZER INC-2020187248

PATIENT
  Age: 55 Year
  Sex: Female
  Weight: 43.54 kg

DRUGS (5)
  1. TYVASO [Suspect]
     Active Substance: TREPROSTINIL
     Indication: PULMONARY ARTERIAL HYPERTENSION
     Dosage: UNK; (CONCENTRATION OF 0.6 MG/ML) )
     Route: 055
     Dates: start: 20170328
  2. TYVASO [Suspect]
     Active Substance: TREPROSTINIL
     Dosage: UNK, 4X/DAY [18-54 ?G (3-9 BREATHS)]
     Route: 055
  3. OPSUMIT [Concomitant]
     Active Substance: MACITENTAN
     Dosage: UNK
  4. SOTALOL. [Suspect]
     Active Substance: SOTALOL
     Dosage: UNK
  5. NORVASC [Suspect]
     Active Substance: AMLODIPINE BESYLATE
     Dosage: UNK

REACTIONS (16)
  - Asthenia [Unknown]
  - Cough [Unknown]
  - Drug intolerance [Unknown]
  - Platelet count decreased [Unknown]
  - White blood cell count decreased [Unknown]
  - Palpitations [Unknown]
  - Blood pressure decreased [Unknown]
  - Pyrexia [Unknown]
  - Nausea [Unknown]
  - Vomiting [Unknown]
  - Influenza [Unknown]
  - Dizziness [Unknown]
  - Product dose omission [Unknown]
  - Wheezing [Unknown]
  - Diabetes mellitus [Unknown]
  - Heart rate decreased [Unknown]

NARRATIVE: CASE EVENT DATE: 201912
